FAERS Safety Report 5282500-8 (Version None)
Quarter: 2007Q1

REPORT INFORMATION
  Report Type: 
  Country: None (occurrence: None)
  Receive Date: 20061226
  Receipt Date: 20060404
  Transmission Date: 20070707
  Serious: Yes (Other)
  Sender: FDA-Public Use
  Company Number: 145237USA

PATIENT
  Age: 62 Year
  Sex: Female
  Weight: 58.9676 kg

DRUGS (3)
  1. AMIODARONE HYDROCHLORIDE [Suspect]
     Indication: MITRAL VALVE REPLACEMENT
     Dosage: (200 MG)
     Dates: start: 20050901, end: 20060328
  2. FISH OIL [Concomitant]
  3. VITAMIN CAP [Concomitant]

REACTIONS (13)
  - ALOPECIA [None]
  - ANAEMIA [None]
  - COUGH [None]
  - DEHYDRATION [None]
  - DIARRHOEA [None]
  - DRUG TOXICITY [None]
  - FATIGUE [None]
  - HAEMOPTYSIS [None]
  - LIP DRY [None]
  - MYALGIA [None]
  - PAIN [None]
  - SCAB [None]
  - STOMATITIS [None]
